FAERS Safety Report 26074670 (Version 1)
Quarter: 2025Q4

REPORT INFORMATION
  Report Type: Spontaneous
  Country: CN (occurrence: CN)
  Receive Date: 20251121
  Receipt Date: 20251121
  Transmission Date: 20260117
  Serious: Yes (Other)
  Sender: PHARMACOSMOS A/S
  Company Number: CN-NEBO-713793

PATIENT
  Age: 67 Year
  Sex: Male

DRUGS (3)
  1. ETOPOSIDE [Concomitant]
     Active Substance: ETOPOSIDE
     Indication: Neuroendocrine tumour of the lung
     Dates: start: 20240318
  2. CARBOPLATIN [Concomitant]
     Active Substance: CARBOPLATIN
     Indication: Neuroendocrine tumour of the lung
     Dates: start: 20240318
  3. TRILACICLIB [Suspect]
     Active Substance: TRILACICLIB
     Indication: Neuroendocrine tumour of the lung
     Dates: start: 20240318

REACTIONS (1)
  - Myelosuppression [Recovered/Resolved]

NARRATIVE: CASE EVENT DATE: 20240301
